FAERS Safety Report 6170941-6 (Version None)
Quarter: 2009Q2

REPORT INFORMATION
  Report Type: 
  Country: None (occurrence: None)
  Receive Date: 20090427
  Receipt Date: 20090427
  Transmission Date: 20091009
  Serious: Yes (Life-Threatening, Hospitalization)
  Sender: FDA-Public Use
  Company Number: None

PATIENT
  Sex: Female
  Weight: 68.1 kg

DRUGS (17)
  1. LINEZOLID [Suspect]
     Indication: INFECTION
     Dosage: 600MG PO Q/I
     Route: 048
     Dates: start: 20080918, end: 20081001
  2. PREVACID [Concomitant]
  3. PLAVIX [Concomitant]
  4. LASIX [Concomitant]
  5. FOLIC ACID [Concomitant]
  6. K-DUR [Concomitant]
  7. MAGNESIUM OXIDE [Concomitant]
  8. ATROVENT [Concomitant]
  9. METOPROLOL TARTRATE [Concomitant]
  10. SIMVASTATIN [Concomitant]
  11. M.V.I. [Concomitant]
  12. HEPARIN [Concomitant]
  13. PERCOCET [Concomitant]
  14. ASPIRIN [Concomitant]
  15. TIGECYCLINE [Concomitant]
  16. CASPOFUNGIN [Concomitant]
  17. LINEZOLID [Concomitant]

REACTIONS (2)
  - PLATELET COUNT DECREASED [None]
  - RESPIRATORY DISTRESS [None]
